FAERS Safety Report 20976198 (Version 1)
Quarter: 2022Q2

REPORT INFORMATION
  Report Type: Spontaneous
  Country: CN (occurrence: CN)
  Receive Date: 20220617
  Receipt Date: 20220617
  Transmission Date: 20220720
  Serious: Yes (Other)
  Sender: FDA-Public Use
  Company Number: CN-PFIZER INC-PV202200003169

PATIENT
  Age: 55 Year
  Sex: Male
  Weight: 49.5 kg

DRUGS (7)
  1. CELEBREX [Suspect]
     Active Substance: CELECOXIB
     Indication: Intercostal neuralgia
     Dosage: 1 DF, 2X/DAY
     Route: 048
     Dates: start: 20190815, end: 20190827
  2. GLYCERIN\MEDIUM-CHAIN TRIGLYCERIDES\PHOSPHOLIPID\SOYBEAN OIL [Suspect]
     Active Substance: GLYCERIN\MEDIUM-CHAIN TRIGLYCERIDES\PHOSPHOLIPID\SOYBEAN OIL
     Indication: Oesophageal squamous cell carcinoma
     Dosage: 250 ML, 1X/DAY
     Route: 041
     Dates: start: 20190814, end: 20190819
  3. GLYCERIN\MEDIUM-CHAIN TRIGLYCERIDES\PHOSPHOLIPID\SOYBEAN OIL [Suspect]
     Active Substance: GLYCERIN\MEDIUM-CHAIN TRIGLYCERIDES\PHOSPHOLIPID\SOYBEAN OIL
     Indication: Pneumonia
  4. CLAFORAN [Suspect]
     Active Substance: CEFOTAXIME SODIUM
     Indication: Oesophageal squamous cell carcinoma
     Dosage: 2 G, 2X/DAY
     Route: 041
     Dates: start: 20190814, end: 20190822
  5. CLAFORAN [Suspect]
     Active Substance: CEFOTAXIME SODIUM
     Indication: Pneumonia
  6. AMINO ACIDS, SOURCE UNSPECIFIED [Concomitant]
     Active Substance: AMINO ACIDS, SOURCE UNSPECIFIED
     Indication: Nutritional supplementation
     Dosage: 250 ML, 1X/DAY
     Route: 041
     Dates: start: 20190814, end: 20190819
  7. SODIUM CHLORIDE [Concomitant]
     Active Substance: SODIUM CHLORIDE
     Indication: Vehicle solution use
     Dosage: 100 ML, 2X/DAY
     Route: 041
     Dates: start: 20190814, end: 20190822

REACTIONS (1)
  - Liver injury [Recovered/Resolved]

NARRATIVE: CASE EVENT DATE: 20190817
